FAERS Safety Report 15336170 (Version 2)
Quarter: 2019Q2

REPORT INFORMATION
  Report Type: Spontaneous
  Country: NO (occurrence: NO)
  Receive Date: 20180830
  Receipt Date: 20190424
  Transmission Date: 20190711
  Serious: Yes (Hospitalization, Other)
  Sender: FDA-Public Use
  Company Number: NO-ELI_LILLY_AND_COMPANY-NO201808011109

PATIENT
  Age: 40 Year
  Sex: Male

DRUGS (2)
  1. XEPLION [Suspect]
     Active Substance: PALIPERIDONE PALMITATE
     Indication: SCHIZOPHRENIA
     Dosage: UNK UNK, UNKNOWN
     Route: 030
     Dates: start: 201207
  2. ZYPREXA [Suspect]
     Active Substance: OLANZAPINE
     Indication: SCHIZOPHRENIA
     Dosage: UNK UNK, UNKNOWN
     Route: 065
     Dates: start: 200511

REACTIONS (9)
  - Malnutrition [Unknown]
  - Dizziness [Unknown]
  - Schizophrenia [Unknown]
  - Neurological symptom [Unknown]
  - Weight increased [Unknown]
  - Blood cholesterol increased [Unknown]
  - Metabolic disorder [Unknown]
  - Hyperglycaemia [Unknown]
  - Parkinsonism [Unknown]

NARRATIVE: CASE EVENT DATE: 2016
